FAERS Safety Report 9272624 (Version 1)
Quarter: 2013Q2

REPORT INFORMATION
  Report Type: Spontaneous
  Country: US (occurrence: US)
  Receive Date: 20130506
  Receipt Date: 20130506
  Transmission Date: 20140414
  Serious: No
  Sender: FDA-Public Use
  Company Number: US-ASTRAZENECA-2013SE02686

PATIENT
  Age: 77 Year
  Sex: Female

DRUGS (6)
  1. PRILOSEC OTC [Suspect]
     Route: 048
     Dates: start: 20130103, end: 20130103
  2. SYNTHROID [Concomitant]
  3. DYAZIDE [Concomitant]
  4. A VITAMIN [Concomitant]
     Indication: MACULAR DEGENERATION
  5. THERTEX [Concomitant]
  6. VITAMIN D [Concomitant]

REACTIONS (2)
  - Oral discomfort [Recovered/Resolved]
  - Stomatitis [Recovered/Resolved]
